FAERS Safety Report 7497859-0 (Version None)
Quarter: 2011Q2

REPORT INFORMATION
  Report Type: 
  Country: None (occurrence: None)
  Receive Date: 20110524
  Receipt Date: 20110512
  Transmission Date: 20111010
  Serious: Yes (Death)
  Sender: FDA-Public Use
  Company Number: JP-BAYER-2011-040749

PATIENT
  Age: 70 Year
  Sex: Male

DRUGS (8)
  1. URSO 250 [Concomitant]
     Dosage: UNK
     Route: 048
  2. CEFAZOLIN SODIUM [Concomitant]
     Dosage: UNK
     Route: 048
  3. FLAGYL [Suspect]
     Indication: LIVER ABSCESS
     Dosage: 2 DF, TID
     Route: 048
     Dates: start: 20110205, end: 20110304
  4. ETODOLAC [Concomitant]
     Dosage: UNK
     Route: 048
  5. CIPROFLOXACIN HCL [Suspect]
     Indication: LIVER ABSCESS
     Dosage: 4 DF, BID
     Route: 048
     Dates: start: 20110205, end: 20110304
  6. RABEPRAZOLE SODIUM [Concomitant]
     Dosage: UNK
     Route: 048
  7. FRANDOL [Concomitant]
     Dosage: UNK
     Route: 062
  8. PL (NON-PYRINE COLD PREPARATION) [Suspect]
     Indication: NASOPHARYNGITIS
     Dosage: DAILY DOSE 3 G
     Route: 048
     Dates: start: 20110223

REACTIONS (6)
  - DECREASED APPETITE [None]
  - RENAL IMPAIRMENT [None]
  - MULTI-ORGAN FAILURE [None]
  - HEPATIC FUNCTION ABNORMAL [None]
  - TOXIC EPIDERMAL NECROLYSIS [None]
  - NAUSEA [None]
